FAERS Safety Report 5488753-5 (Version None)
Quarter: 2007Q4

REPORT INFORMATION
  Report Type: 
  Country: None (occurrence: None)
  Receive Date: 20071017
  Receipt Date: 20071010
  Transmission Date: 20080405
  Serious: Yes (Other)
  Sender: FDA-Public Use
  Company Number: US-BOEHRINGER INGELHEIM PHARMACEUTICALS, INC.-2007-BP-22538BP

PATIENT
  Age: 75 Year
  Sex: Female

DRUGS (10)
  1. MOBIC [Suspect]
     Indication: OSTEOARTHRITIS
     Dates: start: 20070206, end: 20070213
  2. MOBIC [Suspect]
     Dates: start: 20070213, end: 20070919
  3. STUDY DRUG [Suspect]
     Indication: OSTEOARTHRITIS
     Dates: start: 20070122, end: 20070919
  4. BENAZEPRIL HYDROCHLORIDE [Concomitant]
  5. CRESTOR [Concomitant]
  6. ALPHAGAN [Concomitant]
  7. NASONEX [Concomitant]
  8. TRAVATAN [Concomitant]
  9. MULTI-VITAMIN [Concomitant]
  10. VITAMIN B-12 [Concomitant]

REACTIONS (1)
  - TRANSIENT ISCHAEMIC ATTACK [None]
